FAERS Safety Report 4360982-3 (Version None)
Quarter: 2004Q2

REPORT INFORMATION
  Report Type: 
  Country: None (occurrence: None)
  Receive Date: 20040514
  Receipt Date: 20040503
  Transmission Date: 20050107
  Serious: Yes (Other)
  Sender: FDA-Public Use
  Company Number: 2004029685

PATIENT
  Age: 35 Year
  Sex: Male

DRUGS (1)
  1. VIRACEPT [Suspect]
     Indication: HIV INFECTION
     Dates: start: 19990101, end: 19990801

REACTIONS (3)
  - ASEPTIC NECROSIS BONE [None]
  - JOINT EFFUSION [None]
  - MENISCUS LESION [None]
